FAERS Safety Report 15328841 (Version 1)
Quarter: 2018Q3

REPORT INFORMATION
  Report Type: Spontaneous
  Country: ES (occurrence: ES)
  Receive Date: 20180829
  Receipt Date: 20180829
  Transmission Date: 20181010
  Serious: Yes (Hospitalization)
  Sender: FDA-Public Use
  Company Number: ES-B.I. PHARMACEUTICALS,INC./RIDGEFIELD-2018-12-002861

PATIENT
  Age: 68 Year
  Sex: Male

DRUGS (7)
  1. ENALAPRIL + HIDROCLOROTIAZIDA [Concomitant]
     Active Substance: ENALAPRIL MALEATE\HYDROCHLOROTHIAZIDE
     Indication: DIABETIC RETINOPATHY
     Dosage: FORM STRENGTH: 20 MG/12,5 MG 28 COMPRIMIDOS
     Route: 065
  2. AMLODIPINE [Concomitant]
     Active Substance: AMLODIPINE BESYLATE
     Indication: HYPERTENSION
     Dosage: (1FG) 30 COMPRIMIDOS
     Route: 048
     Dates: start: 20110602
  3. METFORMINA [Concomitant]
     Active Substance: METFORMIN HYDROCHLORIDE
     Indication: DIABETES MELLITUS
     Dosage: 50 COMPRIMIDOS
     Route: 048
     Dates: start: 20110516
  4. SIMVASTATINA [Concomitant]
     Active Substance: SIMVASTATIN
     Indication: HYPERLIPIDAEMIA
     Dosage: 28 COMPRIMIDOS
     Route: 048
     Dates: start: 20110502
  5. ISOPHANE INSULIN [Concomitant]
     Active Substance: INSULIN NOS
     Indication: DIABETES MELLITUS
     Dosage: 100 IU/ML INJECTABLE SUSPENSION IN A PRE?FILLED PEN, 5 PRE?FILLED PENS OF 3ML
     Route: 058
     Dates: start: 20110517
  6. JARDIANCE [Suspect]
     Active Substance: EMPAGLIFLOZIN
     Indication: DIABETES MELLITUS
     Route: 048
     Dates: start: 20180228, end: 20180817
  7. NOVORAPID [Concomitant]
     Active Substance: INSULIN ASPART
     Indication: DIABETES MELLITUS
     Dosage: FLEXPEN 100 U/ML INJECTABLE SOLUTION IN A PRE?FILLED PEN, 5 PRE?FILLED PENS OF 3ML
     Route: 058
     Dates: start: 20120424

REACTIONS (2)
  - Diabetic foot [Recovering/Resolving]
  - Cellulitis [Recovering/Resolving]

NARRATIVE: CASE EVENT DATE: 20180730
